FAERS Safety Report 9171415 (Version 2)
Quarter: 2013Q1

REPORT INFORMATION
  Report Type: Spontaneous
  Country: US (occurrence: US)
  Receive Date: 20130319
  Receipt Date: 20130321
  Transmission Date: 20140127
  Serious: Yes (Other)
  Sender: FDA-Public Use
  Company Number: US-JNJFOC-20130303204

PATIENT
  Age: 86 None
  Sex: Female
  Weight: 72.12 kg

DRUGS (2)
  1. XARELTO [Suspect]
     Indication: CEREBROVASCULAR ACCIDENT PROPHYLAXIS
     Route: 048
     Dates: start: 201211
  2. XARELTO [Suspect]
     Indication: ATRIAL FIBRILLATION
     Route: 048
     Dates: start: 201211

REACTIONS (4)
  - Haemorrhage [Recovered/Resolved]
  - Haemorrhoidal haemorrhage [Recovered/Resolved]
  - Food interaction [Unknown]
  - Influenza [Recovered/Resolved]
